FAERS Safety Report 17729926 (Version 1)
Quarter: 2020Q2

REPORT INFORMATION
  Report Type: Report from Study
  Country: IN (occurrence: IN)
  Receive Date: 20200430
  Receipt Date: 20200430
  Transmission Date: 20200714
  Serious: Yes (Other)
  Sender: FDA-Public Use
  Company Number: NVSC2020IN117169

PATIENT
  Age: 62 Year
  Sex: Male
  Weight: 66 kg

DRUGS (1)
  1. GALVUS MET [Suspect]
     Active Substance: METFORMIN HYDROCHLORIDE\VILDAGLIPTIN
     Indication: DIABETES MELLITUS
     Dosage: 1 DF (500/50 MG), BID (1-0-1) (STARTED 3-4 YEARS AGO)
     Route: 048

REACTIONS (5)
  - Hyperglycaemia [Unknown]
  - Nasopharyngitis [Unknown]
  - Cough [Unknown]
  - Decreased immune responsiveness [Unknown]
  - Hypertension [Unknown]

NARRATIVE: CASE EVENT DATE: 20200404
